FAERS Safety Report 9366959 (Version 2)
Quarter: 2013Q3

REPORT INFORMATION
  Report Type: Spontaneous
  Country: JP (occurrence: JP)
  Receive Date: 20130625
  Receipt Date: 20130805
  Transmission Date: 20140515
  Serious: Yes (Hospitalization)
  Sender: FDA-Public Use
  Company Number: JP-GLAXOSMITHKLINE-B0896093A

PATIENT
  Age: 46 Year
  Sex: Male

DRUGS (6)
  1. ZOVIRAX [Suspect]
     Indication: ENCEPHALITIS
     Dosage: 500MG PER DAY
     Route: 042
     Dates: start: 20130517, end: 20130528
  2. VANCOMYCIN [Concomitant]
     Route: 042
     Dates: start: 20130517, end: 20130529
  3. VICCILLIN [Concomitant]
     Dosage: 2G TWICE PER DAY
     Route: 065
     Dates: start: 20130519, end: 20130528
  4. MEROPEN [Concomitant]
     Dosage: 2G TWICE PER DAY
     Route: 042
     Dates: start: 20130517
  5. CIPROXAN [Concomitant]
     Dosage: 400G PER DAY
     Route: 042
     Dates: start: 20130518, end: 20130522
  6. ALEVIATIN [Concomitant]
     Route: 042

REACTIONS (1)
  - Altered state of consciousness [Recovering/Resolving]
